FAERS Safety Report 19703493 (Version 4)
Quarter: 2021Q4

REPORT INFORMATION
  Report Type: Report from Study
  Country: KR (occurrence: KR)
  Receive Date: 20210816
  Receipt Date: 20211001
  Transmission Date: 20220304
  Serious: Yes (Life-Threatening, Hospitalization, Other)
  Sender: FDA-Public Use
  Company Number: KR-CELLTRION INC.-2019KR020622

PATIENT

DRUGS (69)
  1. TRUXIMA [Suspect]
     Active Substance: RITUXIMAB-ABBS
     Indication: Waldenstrom^s macroglobulinaemia
     Dosage: 570 MG (CYCLE 1 DAY 1)
     Route: 042
     Dates: start: 20190415, end: 20190415
  2. TRUXIMA [Suspect]
     Active Substance: RITUXIMAB-ABBS
     Dosage: 570 MG (CYCLE 1 DAY 1)
     Route: 042
     Dates: start: 20190415, end: 20190415
  3. TRUXIMA [Suspect]
     Active Substance: RITUXIMAB-ABBS
     Dosage: 570 MG (CYCLE 2 DAY 1)
     Route: 042
     Dates: start: 20190514, end: 20190514
  4. TRUXIMA [Suspect]
     Active Substance: RITUXIMAB-ABBS
     Dosage: 570 MG (CYCLE 2 DAY 1)
     Route: 042
     Dates: start: 20190514, end: 20190514
  5. TRUXIMA [Suspect]
     Active Substance: RITUXIMAB-ABBS
     Dosage: 570 MG
     Dates: start: 20190620
  6. TRUXIMA [Suspect]
     Active Substance: RITUXIMAB-ABBS
     Dosage: 570 MG
     Dates: start: 20190620
  7. TRUXIMA [Suspect]
     Active Substance: RITUXIMAB-ABBS
     Dosage: 570 MG
     Route: 042
     Dates: start: 20190718, end: 20190718
  8. TRUXIMA [Suspect]
     Active Substance: RITUXIMAB-ABBS
     Dosage: 570 MG
     Route: 042
     Dates: start: 20190718, end: 20190718
  9. TRUXIMA [Suspect]
     Active Substance: RITUXIMAB-ABBS
     Dosage: 570 MG (CYCLE 5, DAY 1)
     Route: 042
     Dates: start: 20190816, end: 20190816
  10. TRUXIMA [Suspect]
     Active Substance: RITUXIMAB-ABBS
     Dosage: 570MG (CYCLE 5, DAY 1)
     Route: 042
     Dates: start: 20190816, end: 20190816
  11. TRUXIMA [Suspect]
     Active Substance: RITUXIMAB-ABBS
     Dosage: UNK
     Dates: start: 20210807
  12. TRUXIMA [Suspect]
     Active Substance: RITUXIMAB-ABBS
     Dosage: UNK
     Route: 042
     Dates: start: 20190415, end: 20190816
  13. BORTEZOMIB [Suspect]
     Active Substance: BORTEZOMIB
     Indication: Product use in unapproved indication
     Dosage: 1.98 MG (CYCLE 1 DAY 1)
     Dates: start: 20190416, end: 20190416
  14. BORTEZOMIB [Suspect]
     Active Substance: BORTEZOMIB
     Dosage: 2 MG (CYCLE1 DAY8)
     Dates: start: 20190423, end: 20190423
  15. BORTEZOMIB [Suspect]
     Active Substance: BORTEZOMIB
     Dosage: 2 MG (CYCLE 1 DAY 15)
     Dates: start: 20190430, end: 20190430
  16. BORTEZOMIB [Suspect]
     Active Substance: BORTEZOMIB
     Dosage: 2 MG (CYLCE 2 DAY 1)
     Dates: start: 20190514, end: 20190514
  17. BORTEZOMIB [Suspect]
     Active Substance: BORTEZOMIB
     Dosage: (CYCLE 2, DAY 8 AND 15)
     Dates: start: 20190530, end: 20190605
  18. LENALIDOMIDE [Suspect]
     Active Substance: LENALIDOMIDE
     Indication: Product use in unapproved indication
     Dosage: 15 MG (CYCLE 1 DAY 1)
     Dates: start: 20190416, end: 20190416
  19. LENALIDOMIDE [Suspect]
     Active Substance: LENALIDOMIDE
     Dosage: 15 MG (CYCLE 1 DAY 8)
     Dates: start: 20190423, end: 20190423
  20. LENALIDOMIDE [Suspect]
     Active Substance: LENALIDOMIDE
     Dosage: 15 MG (CYCLE 1 DAY 15)
     Dates: start: 20190430, end: 20190430
  21. LENALIDOMIDE [Suspect]
     Active Substance: LENALIDOMIDE
     Dosage: 15 MG (CYCLE 2 DAY 1)
     Dates: start: 20190514, end: 20190514
  22. CEFTRIAXONE [Concomitant]
     Active Substance: CEFTRIAXONE
     Indication: Infection prophylaxis
     Dosage: 2 G, BID
     Route: 042
     Dates: start: 20190418, end: 20190423
  23. PLAVIX [Concomitant]
     Active Substance: CLOPIDOGREL BISULFATE
     Indication: Pain prophylaxis
     Dosage: 75 MG, QD
     Route: 048
     Dates: start: 20190418
  24. PLAVIX [Concomitant]
     Active Substance: CLOPIDOGREL BISULFATE
     Indication: Prophylaxis
     Dosage: 75 MG, QD
     Route: 048
     Dates: start: 20210809
  25. PLAVIX [Concomitant]
     Active Substance: CLOPIDOGREL BISULFATE
     Indication: Myocardial infarction
     Dosage: 75 MG, QD
     Route: 048
     Dates: start: 20190417
  26. TAMBOCOR [Concomitant]
     Active Substance: FLECAINIDE ACETATE
     Indication: Pain prophylaxis
     Dosage: 50 MG, QD
     Route: 048
     Dates: start: 20190418
  27. TAMBOCOR [Concomitant]
     Active Substance: FLECAINIDE ACETATE
     Indication: Infection prophylaxis
     Dosage: 50 MG, BID
     Route: 048
     Dates: start: 20210809
  28. TAMBOCOR [Concomitant]
     Active Substance: FLECAINIDE ACETATE
     Dosage: 50 MG, BID
     Route: 048
     Dates: start: 20190417, end: 20190904
  29. METOPROLOL [Concomitant]
     Active Substance: METOPROLOL
     Indication: Pain prophylaxis
     Dosage: 100 MG, QD
     Route: 048
     Dates: start: 20190418
  30. METOPROLOL [Concomitant]
     Active Substance: METOPROLOL
     Indication: Infection prophylaxis
     Dosage: 100 MG, BID
     Route: 048
     Dates: start: 20210809
  31. METOPROLOL [Concomitant]
     Active Substance: METOPROLOL
     Dosage: 25 MG, BID
     Route: 048
     Dates: start: 20190417, end: 20190904
  32. FLUCOZOLE [Concomitant]
     Indication: Infection prophylaxis
     Dosage: 50 MG, QD
     Route: 048
     Dates: start: 20190418
  33. FLUCOZOLE [Concomitant]
     Dosage: 50 MG, BID
     Route: 048
     Dates: start: 20210809
  34. FLUCOZOLE [Concomitant]
     Dosage: 100 MG, BID
     Route: 048
     Dates: start: 20190418
  35. LASIX [Concomitant]
     Active Substance: FUROSEMIDE
     Indication: Oedema
     Dosage: 20 MG, QD
     Route: 042
     Dates: start: 20190420, end: 20190420
  36. LASIX [Concomitant]
     Active Substance: FUROSEMIDE
     Dosage: 20 MG, QD
     Route: 048
     Dates: start: 20190522
  37. LASIX [Concomitant]
     Active Substance: FUROSEMIDE
     Dosage: 40 MG, QD
     Route: 048
     Dates: start: 20210809
  38. LASIX [Concomitant]
     Active Substance: FUROSEMIDE
     Dosage: 20 UNK
     Route: 048
     Dates: start: 20190430, end: 20190904
  39. LACTULOSE [Concomitant]
     Active Substance: LACTULOSE
     Indication: Constipation
     Dosage: 15 ML, QD
     Route: 048
     Dates: start: 20190420, end: 20190420
  40. AMINO ACIDS\DEXTROSE\ELECTROLYTES NOS\SOYBEAN OIL\VITAMINS [Concomitant]
     Active Substance: AMINO ACIDS\DEXTROSE\ELECTROLYTES NOS\SOYBEAN OIL\VITAMINS
     Indication: Decreased appetite
     Dosage: 1085 ML, QD
     Route: 042
     Dates: start: 20190521
  41. GLAMIN [ALANINE;ARGININE HYDROCHLORIDE;ASPARTIC ACID;GLUTAMIC ACID;GLY [Concomitant]
     Indication: Nutritional supplementation
     Dosage: 500 ML, QD
     Route: 042
     Dates: start: 20190521
  42. ALBUMIN 20% [Concomitant]
     Indication: Hypoalbuminaemia
     Dosage: 100 ML, QD
     Route: 042
     Dates: start: 20190521
  43. CYMBALTA [Concomitant]
     Active Substance: DULOXETINE HYDROCHLORIDE
     Indication: Neuropathy peripheral
     Dosage: 30 MG, QD
     Route: 048
     Dates: start: 20190521, end: 20190822
  44. CEFTAZIDIME [Concomitant]
     Active Substance: CEFTAZIDIME
     Indication: Infection prophylaxis
     Dosage: 2 G, BID
     Route: 042
     Dates: start: 20190521
  45. ACETYLCYSTEINE [Concomitant]
     Active Substance: ACETYLCYSTEINE
     Indication: Premedication
     Dosage: 10 ML, BID
     Route: 042
     Dates: start: 20190521, end: 20190521
  46. MOSAPRIDE CITRATE [Concomitant]
     Active Substance: MOSAPRIDE CITRATE
     Indication: Prophylaxis
     Dosage: 5 MG, TID
     Route: 048
     Dates: start: 20190522, end: 20190822
  47. MOSAPRIDE CITRATE [Concomitant]
     Active Substance: MOSAPRIDE CITRATE
     Indication: Pain prophylaxis
     Dosage: 5 MG, BID
     Route: 048
     Dates: start: 20210809
  48. ALFUZOSIN HYDROCHLORIDE [Concomitant]
     Active Substance: ALFUZOSIN HYDROCHLORIDE
     Indication: Benign prostatic hyperplasia
     Dosage: 10 MG, QD
     Route: 048
     Dates: start: 20190411
  49. ALFUZOSIN HYDROCHLORIDE [Concomitant]
     Active Substance: ALFUZOSIN HYDROCHLORIDE
     Dosage: 10 MG, QD
     Route: 048
     Dates: start: 20190419
  50. ALFUZOSIN HYDROCHLORIDE [Concomitant]
     Active Substance: ALFUZOSIN HYDROCHLORIDE
     Dosage: 10 MG, QD
     Route: 048
     Dates: start: 20210809
  51. RABEPRAZOLE SODIUM [Concomitant]
     Active Substance: RABEPRAZOLE SODIUM
     Indication: Prophylaxis
     Dosage: 10 ML, QD
     Route: 048
     Dates: start: 20190522, end: 20190822
  52. SULFAMETHOXAZOLE\TRIMETHOPRIM [Concomitant]
     Active Substance: SULFAMETHOXAZOLE\TRIMETHOPRIM
     Indication: Infection prophylaxis
     Dosage: 1 DF, QD
     Route: 048
     Dates: start: 20190521
  53. SULFAMETHOXAZOLE\TRIMETHOPRIM [Concomitant]
     Active Substance: SULFAMETHOXAZOLE\TRIMETHOPRIM
     Dosage: UNK UNK, QD
     Route: 048
     Dates: start: 20210809
  54. SULFAMETHOXAZOLE\TRIMETHOPRIM [Concomitant]
     Active Substance: SULFAMETHOXAZOLE\TRIMETHOPRIM
     Dosage: 1 TAB, QD
     Route: 048
     Dates: start: 20190423
  55. MIDRON [Concomitant]
     Indication: Orthostatic hypotension
     Dosage: 2.5 MG, BID
     Route: 048
     Dates: start: 20190521
  56. MIDRON [Concomitant]
     Dosage: 2.5 MG, BID
     Route: 048
     Dates: start: 20210809
  57. MIDRON [Concomitant]
     Dosage: 2.5 MG, BID
     Route: 048
     Dates: start: 20190531
  58. MEGACE [Concomitant]
     Active Substance: MEGESTROL ACETATE
     Indication: Hypophagia
     Dosage: 625 MG
     Route: 048
     Dates: start: 20190529
  59. LECTACIN [Concomitant]
     Indication: Prophylaxis
     Dosage: 250 MG, QD
     Route: 048
     Dates: start: 20190422, end: 20190823
  60. TYLENOL [Concomitant]
     Active Substance: ACETAMINOPHEN
     Indication: Premedication
     Dosage: 650 MG, QD
     Route: 048
     Dates: start: 20190816, end: 20190816
  61. LEVOFLOXACIN [Concomitant]
     Active Substance: LEVOFLOXACIN
     Indication: Infection prophylaxis
     Dosage: 100 MG, BID
     Route: 042
     Dates: start: 20210809
  62. MAGO [Concomitant]
     Indication: Pain prophylaxis
     Dosage: 250 MG, BID
     Route: 048
     Dates: start: 20210809
  63. MAGO [Concomitant]
     Indication: Prophylaxis
     Dosage: 250 MG, BID
     Route: 048
     Dates: start: 20210225
  64. MEGACE F [Concomitant]
     Indication: Prophylaxis
     Dosage: 625 MG, QD
     Route: 048
     Dates: start: 20190529
  65. LEFEXIN [Concomitant]
     Indication: Infection prophylaxis
     Dosage: 200 MG, QD
     Route: 048
     Dates: start: 20190627, end: 20190904
  66. NEWRABELL [Concomitant]
     Indication: Prophylaxis
     Dosage: 10 MG, QD
     Route: 048
     Dates: start: 20190430, end: 20190904
  67. GASPIRAN [Concomitant]
     Indication: Prophylaxis
     Dosage: 5 MG, TID
     Route: 048
     Dates: start: 20190627, end: 20190904
  68. DULOXTA [Concomitant]
     Indication: Neuropathy peripheral
     Dosage: 30 MG, QD
     Route: 048
     Dates: start: 20190514, end: 20191009
  69. DULOXTA [Concomitant]
     Dosage: 60 MG, QD
     Route: 048
     Dates: start: 20191010, end: 20210807

REACTIONS (10)
  - Neutrophil count decreased [Recovered/Resolved]
  - Pyrexia [Recovered/Resolved]
  - Drug hypersensitivity [Recovered/Resolved]
  - Dyspnoea exertional [Not Recovered/Not Resolved]
  - Acute kidney injury [Recovering/Resolving]
  - Hypophagia [Unknown]
  - Fall [Recovered/Resolved]
  - Asthenia [Unknown]
  - Dehydration [Unknown]
  - Off label use [Unknown]

NARRATIVE: CASE EVENT DATE: 20190418
